FAERS Safety Report 9776416 (Version 2)
Quarter: 2014Q1

REPORT INFORMATION
  Report Type: Spontaneous
  Country: US (occurrence: US)
  Receive Date: 20131220
  Receipt Date: 20140107
  Transmission Date: 20141002
  Serious: No
  Sender: FDA-Public Use
  Company Number: US-BIOGENIDEC-2013BI120442

PATIENT
  Age: 52 Year
  Sex: Female

DRUGS (15)
  1. TECFIDERA [Suspect]
     Indication: MULTIPLE SCLEROSIS
     Route: 048
     Dates: start: 20131128
  2. TECFIDERA [Suspect]
     Indication: MYELITIS TRANSVERSE
     Route: 048
     Dates: start: 20131128
  3. TECFIDERA [Suspect]
     Indication: MULTIPLE SCLEROSIS
     Route: 048
     Dates: start: 201312
  4. TECFIDERA [Suspect]
     Indication: MYELITIS TRANSVERSE
     Route: 048
     Dates: start: 201312
  5. BENADRYL [Concomitant]
  6. XANAX [Concomitant]
  7. DETROL LA [Concomitant]
  8. TRAMADOL HCL [Concomitant]
  9. GABAPENTIN [Concomitant]
  10. PRILOSEC DR [Concomitant]
  11. FISH OIL [Concomitant]
  12. PROVIGIL [Concomitant]
  13. FLEXERIL [Concomitant]
  14. IBUPROFEN [Concomitant]
  15. VITAMIN D3 [Concomitant]

REACTIONS (5)
  - Off label use [Unknown]
  - Erythema [Recovered/Resolved]
  - Pruritus [Recovered/Resolved]
  - Flushing [Recovered/Resolved]
  - Rash [Recovered/Resolved]
